FAERS Safety Report 8171853-9 (Version None)
Quarter: 2012Q1

REPORT INFORMATION
  Report Type: 
  Country: None (occurrence: None)
  Receive Date: 20120113
  Receipt Date: 20111117
  Transmission Date: 20120608
  Serious: Yes (Life-Threatening, Hospitalization)
  Sender: FDA-Public Use
  Company Number: 2011S1000107

PATIENT
  Age: 47 Year
  Sex: Male
  Weight: 70.3075 kg

DRUGS (10)
  1. BENADRYL /00945501/ [Concomitant]
  2. LORTAB [Concomitant]
  3. METOPROLOL SUCCINATE [Concomitant]
  4. KRYSTEXXA [Suspect]
     Indication: GOUTY TOPHUS
     Dosage: X1;IV ; 8 MG;X1;IV ; 8 MG;X1;IV
     Route: 042
     Dates: start: 20111001, end: 20111001
  5. KRYSTEXXA [Suspect]
     Indication: GOUTY TOPHUS
     Dosage: X1;IV ; 8 MG;X1;IV ; 8 MG;X1;IV
     Route: 042
     Dates: start: 20111001, end: 20111001
  6. KRYSTEXXA [Suspect]
     Indication: GOUTY TOPHUS
     Dosage: X1;IV ; 8 MG;X1;IV ; 8 MG;X1;IV
     Route: 042
     Dates: start: 20111110, end: 20111110
  7. SOLU-MEDROL [Concomitant]
  8. ULORIC [Concomitant]
  9. TYLENOL (CAPLET) [Concomitant]
  10. DEPO-MEDROL [Concomitant]

REACTIONS (6)
  - HAEMOGLOBIN DECREASED [None]
  - BLOOD GLUCOSE INCREASED [None]
  - ANAPHYLACTIC REACTION [None]
  - PLATELET COUNT INCREASED [None]
  - THERAPEUTIC RESPONSE DECREASED [None]
  - HAEMATOCRIT DECREASED [None]
